FAERS Safety Report 8204395-2 (Version None)
Quarter: 2012Q1

REPORT INFORMATION
  Report Type: 
  Country: None (occurrence: None)
  Receive Date: 20120313
  Receipt Date: 20120313
  Transmission Date: 20120608
  Serious: Yes (Disabling)
  Sender: FDA-Public Use
  Company Number: None

PATIENT
  Age: 15 Year
  Sex: Female
  Weight: 38.555 kg

DRUGS (2)
  1. STRATTERA [Suspect]
     Indication: ATTENTION DEFICIT/HYPERACTIVITY DISORDER
     Dosage: 25 MG
     Route: 048
     Dates: start: 20120103, end: 20120121
  2. STRATTERA [Concomitant]

REACTIONS (5)
  - EATING DISORDER [None]
  - DEPRESSED MOOD [None]
  - VOMITING [None]
  - DEPRESSION [None]
  - ANXIETY [None]
